FAERS Safety Report 6796202-X (Version None)
Quarter: 2010Q2

REPORT INFORMATION
  Report Type: 
  Country: None (occurrence: None)
  Receive Date: 20100625
  Receipt Date: 20100614
  Transmission Date: 20101027
  Serious: Yes (Hospitalization)
  Sender: FDA-Public Use
  Company Number: JP-AMGEN-US184330

PATIENT
  Sex: Female
  Weight: 45 kg

DRUGS (5)
  1. ENBREL [Suspect]
     Indication: RHEUMATOID ARTHRITIS
     Route: 058
     Dates: start: 20060421, end: 20060613
  2. JUVELA [Concomitant]
     Indication: HYPERTENSION
     Route: 048
     Dates: end: 20060620
  3. OMEPRAL [Concomitant]
     Indication: REFLUX OESOPHAGITIS
     Route: 048
     Dates: end: 20060620
  4. RIMATIL [Concomitant]
     Route: 048
     Dates: start: 20000101, end: 20060616
  5. RENIVACE [Concomitant]
     Indication: HYPERTENSION
     Route: 048
     Dates: end: 20060620

REACTIONS (2)
  - CONDITION AGGRAVATED [None]
  - INTERSTITIAL LUNG DISEASE [None]
